FAERS Safety Report 5703368-9 (Version None)
Quarter: 2008Q2

REPORT INFORMATION
  Report Type: 
  Country: None (occurrence: None)
  Receive Date: 20080411
  Receipt Date: 20080318
  Transmission Date: 20081010
  Serious: Yes (Other)
  Sender: FDA-Public Use
  Company Number: US-BOEHRINGER INGELHEIM GMBH, GERMANY-2008-BP-04360BP

PATIENT
  Sex: Female

DRUGS (1)
  1. DULCOLAX [Suspect]

REACTIONS (1)
  - DRUG ABUSE [None]
